FAERS Safety Report 10331988 (Version 2)
Quarter: 2014Q3

REPORT INFORMATION
  Report Type: Spontaneous
  Country: JP (occurrence: JP)
  Receive Date: 20140722
  Receipt Date: 20140722
  Transmission Date: 20150326
  Serious: Yes (Other)
  Sender: FDA-Public Use
  Company Number: JP-B.I. PHARMACEUTICALS,INC./RIDGEFIELD-2014-BI-32315NB

PATIENT
  Age: 61 Year
  Sex: Female

DRUGS (11)
  1. ALFAROL [Concomitant]
     Active Substance: ALFACALCIDOL
     Route: 065
  2. BI-SIFROL [Suspect]
     Active Substance: PRAMIPEXOLE
     Indication: RESTLESS LEGS SYNDROME
     Dosage: 0.25 MG
     Route: 048
  3. REGPARA [Concomitant]
     Active Substance: CINACALCET HYDROCHLORIDE
     Route: 065
  4. SIGMART [Concomitant]
     Active Substance: NICORANDIL
     Dosage: 15 MG
     Route: 065
  5. LAMISIL [Concomitant]
     Active Substance: TERBINAFINE HYDROCHLORIDE
     Dosage: 125 MG
     Route: 065
  6. CALTAN [Concomitant]
     Active Substance: CALCIUM CARBONATE
     Route: 065
  7. LANSOPRAZOLE OD [Concomitant]
     Active Substance: LANSOPRAZOLE
     Route: 065
  8. PLAVIX [Concomitant]
     Active Substance: CLOPIDOGREL BISULFATE
     Dosage: 75 MG
     Route: 065
  9. EQUA [Concomitant]
     Active Substance: VILDAGLIPTIN
     Route: 065
  10. ANPLAG [Concomitant]
     Active Substance: SARPOGRELATE
     Route: 065
  11. DOPS [Concomitant]
     Active Substance: DROXIDOPA
     Route: 065

REACTIONS (3)
  - Dizziness [Recovered/Resolved]
  - Fracture [Recovered/Resolved]
  - Fall [Recovered/Resolved]

NARRATIVE: CASE EVENT DATE: 2012
